FAERS Safety Report 6842702-3 (Version None)
Quarter: 2010Q3

REPORT INFORMATION
  Report Type: 
  Country: None (occurrence: None)
  Receive Date: 20100714
  Receipt Date: 20070813
  Transmission Date: 20110219
  Serious: Yes (Other)
  Sender: FDA-Public Use
  Company Number: US-PFIZER INC-2007065090

PATIENT
  Sex: Male
  Weight: 90.7 kg

DRUGS (5)
  1. CHANTIX [Suspect]
     Indication: SMOKING CESSATION THERAPY
     Dates: start: 20070601
  2. ATENOLOL [Concomitant]
  3. NIFEDIPINE [Concomitant]
  4. WARFARIN SODIUM [Concomitant]
  5. ZOCOR [Concomitant]

REACTIONS (2)
  - HYPERTENSION [None]
  - TREMOR [None]
